FAERS Safety Report 5925202-4 (Version None)
Quarter: 2008Q4

REPORT INFORMATION
  Report Type: 
  Country: None (occurrence: None)
  Receive Date: 20081021
  Receipt Date: 20081014
  Transmission Date: 20090506
  Serious: Yes (Hospitalization)
  Sender: FDA-Public Use
  Company Number: US-ELI_LILLY_AND_COMPANY-US200804007490

PATIENT
  Sex: Female

DRUGS (4)
  1. HUMALOG [Suspect]
  2. HUMALOG [Suspect]
  3. HUMALOG [Suspect]
  4. METFORMIN HYDROCHLORIDE [Concomitant]

REACTIONS (8)
  - ABDOMINAL PAIN UPPER [None]
  - ACCIDENTAL NEEDLE STICK [None]
  - BLOOD GLUCOSE INCREASED [None]
  - GINGIVAL INFECTION [None]
  - SARCOIDOSIS [None]
  - STRESS [None]
  - VISION BLURRED [None]
  - VISUAL ACUITY REDUCED [None]
